FAERS Safety Report 21803047 (Version 1)
Quarter: 2022Q4

REPORT INFORMATION
  Report Type: Report from Study
  Country: US (occurrence: US)
  Receive Date: 20221231
  Receipt Date: 20221231
  Transmission Date: 20230113
  Serious: No
  Sender: FDA-Public Use
  Company Number: US-ACORDA-ACO_173493_2022

PATIENT
  Sex: Male

DRUGS (6)
  1. INBRIJA [Suspect]
     Active Substance: LEVODOPA
     Indication: Parkinson^s disease
     Dosage: 2 DOSAGE FORM (2 CAPSULES, 84 MG), PRN (NOT TO EXCEED 5 DOSES A DAY)
     Dates: start: 20220910
  2. INBRIJA [Suspect]
     Active Substance: LEVODOPA
     Indication: On and off phenomenon
     Dosage: 2 DOSAGE FORM (2 CAPSULES, 84 MG), PRN (NOT TO EXCEED 5 DOSES A DAY)
     Dates: start: 20220910
  3. INBRIJA [Suspect]
     Active Substance: LEVODOPA
     Dosage: 2 DOSAGE FORM (2 CAPSULES, 84 MG), PRN (NOT TO EXCEED 5 DOSES A DAY)
     Dates: start: 20220910
  4. RYTARY [Concomitant]
     Active Substance: CARBIDOPA\LEVODOPA
     Indication: Product used for unknown indication
     Dosage: 5X A DAY
     Route: 065
  5. OMEPRAZOLE [Concomitant]
     Active Substance: OMEPRAZOLE
     Indication: Product used for unknown indication
     Dosage: 20 MILLIGRAM, QD
     Route: 065
  6. OTHER THERAPEUTIC PRODUCTS (blood pressure medication (unspecified)) [Concomitant]
     Indication: Product used for unknown indication
     Dosage: BLOOD PRESSURE MEDICATION (UNSPECIFIED)
     Route: 065

REACTIONS (3)
  - Drug ineffective [Unknown]
  - Therapy interrupted [Unknown]
  - Cough [Unknown]
